FAERS Safety Report 24034615 (Version 1)
Quarter: 2024Q3

REPORT INFORMATION
  Report Type: Report from Study
  Country: DE (occurrence: DE)
  Receive Date: 20240701
  Receipt Date: 20240701
  Transmission Date: 20241017
  Serious: No
  Sender: ROCHE
  Company Number: DE-ROCHE-3174954

PATIENT
  Age: 9 Year
  Sex: Female
  Weight: 72.8 kg

DRUGS (4)
  1. EVRYSDI [Suspect]
     Active Substance: RISDIPLAM
     Indication: Spinal muscular atrophy
     Dosage: LAST DOSE 18/JAN/2022, 08/MAY/2024
     Route: 048
     Dates: start: 20210707
  2. EVRYSDI [Suspect]
     Active Substance: RISDIPLAM
     Dosage: LAST DOSE 02/MAY/2023
     Route: 048
     Dates: start: 20210520
  3. CHOLECALCIFEROL [Concomitant]
     Active Substance: CHOLECALCIFEROL
     Indication: Product used for unknown indication
     Route: 048
     Dates: start: 2017
  4. POLYETHYLENE GLYCOLS [Concomitant]
     Active Substance: POLYETHYLENE GLYCOLS
     Indication: Product used for unknown indication
     Route: 048
     Dates: start: 201711

REACTIONS (4)
  - Respiratory syncytial virus infection [Recovered/Resolved]
  - Rhinitis [Recovered/Resolved]
  - COVID-19 [Recovered/Resolved]
  - Respiratory tract infection [Recovered/Resolved]

NARRATIVE: CASE EVENT DATE: 20211121
